FAERS Safety Report 16653361 (Version 2)
Quarter: 2019Q3

REPORT INFORMATION
  Report Type: Report from Study
  Country: US (occurrence: US)
  Receive Date: 20190731
  Receipt Date: 20190819
  Transmission Date: 20191004
  Serious: Yes (Other)
  Sender: FDA-Public Use
  Company Number: US-VIFOR (INTERNATIONAL) INC.-VIT-2019-07236

PATIENT
  Age: 85 Year
  Sex: Female
  Weight: 43.68 kg

DRUGS (3)
  1. KAYEXALATE [Concomitant]
     Active Substance: SODIUM POLYSTYRENE SULFONATE
     Dates: start: 201907
  2. KAYEXALATE [Concomitant]
     Active Substance: SODIUM POLYSTYRENE SULFONATE
  3. VELTASSA [Suspect]
     Active Substance: PATIROMER
     Indication: BLOOD POTASSIUM INCREASED
     Route: 048
     Dates: start: 20190720, end: 201907

REACTIONS (14)
  - Diarrhoea [Recovered/Resolved]
  - Abdominal discomfort [Recovered/Resolved]
  - Abdominal pain [Recovered/Resolved]
  - Dehydration [Unknown]
  - Diphtheria [Unknown]
  - Hyponatraemia [Unknown]
  - Blood potassium increased [Unknown]
  - Nausea [Recovered/Resolved]
  - Haemolysis [Unknown]
  - Asthenia [Unknown]
  - Blood creatinine increased [Unknown]
  - Renal function test abnormal [Unknown]
  - Vomiting [Unknown]
  - Renal failure [Unknown]

NARRATIVE: CASE EVENT DATE: 2019
